FAERS Safety Report 23194984 (Version 2)
Quarter: 2023Q4

REPORT INFORMATION
  Report Type: Spontaneous
  Country: DE (occurrence: DE)
  Receive Date: 20231117
  Receipt Date: 20231124
  Transmission Date: 20240109
  Serious: Yes (Other)
  Sender: FDA-Public Use
  Company Number: DE-BoehringerIngelheim-2023-BI-271160

PATIENT
  Sex: Male

DRUGS (1)
  1. TAMSULOSIN [Suspect]
     Active Substance: TAMSULOSIN
     Indication: Prostatomegaly
     Dosage: UNK
     Route: 065

REACTIONS (1)
  - Erectile dysfunction [Unknown]
